FAERS Safety Report 21740160 (Version 2)
Quarter: 2023Q1

REPORT INFORMATION
  Report Type: Spontaneous
  Country: US (occurrence: US)
  Receive Date: 20221216
  Receipt Date: 20230120
  Transmission Date: 20230417
  Serious: Yes (Hospitalization)
  Sender: FDA-Public Use
  Company Number: US-PFIZER INC-202201372505

PATIENT
  Age: 71 Year
  Sex: Female
  Weight: 68.934 kg

DRUGS (4)
  1. PAXLOVID [Suspect]
     Active Substance: NIRMATRELVIR\RITONAVIR
     Indication: COVID-19 treatment
     Dosage: 2 DF, 2X/DAY
  2. MOTRIN [Concomitant]
     Active Substance: IBUPROFEN
     Dosage: 800 MG
  3. MAXALT [Concomitant]
     Active Substance: RIZATRIPTAN BENZOATE
     Dosage: UNK, AS NEEDED
  4. NEXIUM I.V. [Concomitant]
     Active Substance: ESOMEPRAZOLE SODIUM
     Dosage: 40 MG, DAILY (40 MG @ PM)

REACTIONS (7)
  - Headache [Recovered/Resolved]
  - Anxiety [Unknown]
  - Musculoskeletal discomfort [Recovered/Resolved]
  - Insomnia [Unknown]
  - Abdominal pain [Unknown]
  - Somnolence [Unknown]
  - Incorrect dose administered [Unknown]
